FAERS Safety Report 16271961 (Version 1)
Quarter: 2019Q2

REPORT INFORMATION
  Report Type: Spontaneous
  Country: JP (occurrence: JP)
  Receive Date: 20190506
  Receipt Date: 20190506
  Transmission Date: 20190711
  Serious: Yes (Other)
  Sender: FDA-Public Use
  Company Number: JP-CONCORDIA PHARMACEUTICALS INC.-GSH201904-000915

PATIENT
  Age: 30 Year
  Sex: Female
  Weight: 42 kg

DRUGS (5)
  1. PREDONINE [Concomitant]
     Active Substance: PREDNISOLONE
  2. TACROLIMUS MONOHYDRATE [Concomitant]
     Active Substance: TACROLIMUS
     Indication: PRODUCT USED FOR UNKNOWN INDICATION
     Dates: start: 201803, end: 20190304
  3. PLAQUENIL [Suspect]
     Active Substance: HYDROXYCHLOROQUINE SULFATE
     Indication: SYSTEMIC LUPUS ERYTHEMATOSUS
     Dosage: 1 TABLET QD AND 2 TABLETS QD, ALTERNATELY
     Route: 048
     Dates: start: 201709, end: 20190304
  4. BELIMUMAB [Suspect]
     Active Substance: BELIMUMAB
     Dates: start: 20181213, end: 20190304
  5. PREDONINE [Concomitant]
     Active Substance: PREDNISOLONE
     Indication: SYSTEMIC LUPUS ERYTHEMATOSUS
     Dates: start: 201812, end: 20190408

REACTIONS (2)
  - Erythroblast count decreased [Unknown]
  - Anaemia [Not Recovered/Not Resolved]

NARRATIVE: CASE EVENT DATE: 20190325
